FAERS Safety Report 6077673-3 (Version None)
Quarter: 2009Q1

REPORT INFORMATION
  Report Type: 
  Country: None (occurrence: None)
  Receive Date: 20090213
  Receipt Date: 20090129
  Transmission Date: 20090719
  Serious: Yes (Other)
  Sender: FDA-Public Use
  Company Number: IT-GENENTECH-275217

PATIENT

DRUGS (4)
  1. AVASTIN [Suspect]
     Indication: BREAST CANCER
     Dosage: 15 MG/KG, Q3W
     Route: 042
  2. CAPECITABINE [Suspect]
     Indication: BREAST CANCER
     Dosage: 2000 MG/M2, D1-14/Q3W
     Route: 048
  3. VINORELBINE [Suspect]
     Indication: BREAST CANCER
     Dosage: 20 MG/M2, UNK
     Route: 042
  4. LETROZOLE [Suspect]
     Indication: HORMONE REPLACEMENT THERAPY
     Dosage: 2.5 MG, UNK
     Route: 065

REACTIONS (2)
  - CONVULSION [None]
  - JUGULAR VEIN THROMBOSIS [None]
